FAERS Safety Report 5507438-X (Version None)
Quarter: 2007Q4

REPORT INFORMATION
  Report Type: 
  Country: None (occurrence: None)
  Receive Date: 20071106
  Receipt Date: 20071024
  Transmission Date: 20080405
  Serious: Yes (Other)
  Sender: FDA-Public Use
  Company Number: PL-AMGEN-UK250063

PATIENT
  Age: 65 Year
  Sex: Female
  Weight: 62 kg

DRUGS (6)
  1. NEUPOGEN [Suspect]
     Indication: CHEMOTHERAPY
  2. NEULASTA [Suspect]
     Indication: CHEMOTHERAPY
     Route: 058
     Dates: start: 20070928
  3. GEMCITABINE [Concomitant]
  4. FRAXIPARINE [Concomitant]
     Route: 058
  5. DIGOXIN [Concomitant]
  6. CARVEDILOL [Concomitant]

REACTIONS (2)
  - MUSCULOSKELETAL PAIN [None]
  - THROMBOCYTHAEMIA [None]
